FAERS Safety Report 10332865 (Version 2)
Quarter: 2014Q3

REPORT INFORMATION
  Report Type: Spontaneous
  Country: IN (occurrence: IN)
  Receive Date: 20140722
  Receipt Date: 20140724
  Transmission Date: 20150326
  Serious: Yes (Hospitalization, Other)
  Sender: FDA-Public Use
  Company Number: PHHY2014IN087380

PATIENT
  Age: 19 Year
  Sex: Male

DRUGS (11)
  1. OLANZAPINE. [Suspect]
     Active Substance: OLANZAPINE
     Indication: HALLUCINATION
  2. LITHIUM [Suspect]
     Active Substance: LITHIUM CARBONATE
     Indication: HALLUCINATION
  3. CLONAZEPAM. [Suspect]
     Active Substance: CLONAZEPAM
     Indication: HALLUCINATION
  4. OLANZAPINE. [Suspect]
     Active Substance: OLANZAPINE
     Indication: DELUSION
  5. ONDANSETRON [Suspect]
     Active Substance: ONDANSETRON
  6. LITHIUM [Suspect]
     Active Substance: LITHIUM CARBONATE
     Indication: DELUSION
  7. RISPERIDONE. [Suspect]
     Active Substance: RISPERIDONE
     Indication: HALLUCINATION
  8. CLONAZEPAM. [Suspect]
     Active Substance: CLONAZEPAM
     Indication: DELUSION
  9. RISPERIDONE. [Suspect]
     Active Substance: RISPERIDONE
     Indication: DELUSION
  10. VALPROIC ACID. [Suspect]
     Active Substance: VALPROIC ACID
     Indication: HALLUCINATION
  11. VALPROIC ACID. [Suspect]
     Active Substance: VALPROIC ACID
     Indication: DELUSION

REACTIONS (24)
  - Bradykinesia [Recovered/Resolved]
  - Chills [Recovering/Resolving]
  - Agitation [Recovering/Resolving]
  - Clonus [Recovered/Resolved]
  - Neuroleptic malignant syndrome [Recovering/Resolving]
  - Gastrointestinal sounds abnormal [Recovering/Resolving]
  - Diarrhoea [Recovering/Resolving]
  - Unresponsive to stimuli [Recovering/Resolving]
  - Tachycardia [Recovering/Resolving]
  - Tetany [Recovering/Resolving]
  - Pupillary reflex impaired [Recovering/Resolving]
  - Tremor [Recovered/Resolved]
  - Hyperreflexia [Recovered/Resolved]
  - Pneumonia aspiration [Recovering/Resolving]
  - Serotonin syndrome [Recovering/Resolving]
  - Hyperhidrosis [Recovering/Resolving]
  - Blood pressure increased [Recovering/Resolving]
  - Mydriasis [Recovered/Resolved]
  - Tachypnoea [Recovering/Resolving]
  - Pyrexia [Recovered/Resolved]
  - Aggression [Recovering/Resolving]
  - Akinesia [Recovering/Resolving]
  - Hypertonia [Recovering/Resolving]
  - Hypocalcaemia [Recovered/Resolved]
